FAERS Safety Report 18090708 (Version 2)
Quarter: 2020Q3

REPORT INFORMATION
  Report Type: Spontaneous
  Country: US (occurrence: US)
  Receive Date: 20200730
  Receipt Date: 20200903
  Transmission Date: 20201103
  Serious: No
  Sender: FDA-Public Use
  Company Number: US-APOTEX-2020AP013620

PATIENT
  Sex: Female

DRUGS (1)
  1. KETOROLAC TROMETHAMINE OPTHALMIC SOLUTION [Suspect]
     Active Substance: KETOROLAC TROMETHAMINE
     Indication: MACULAR OEDEMA
     Dosage: 1 GTT DROPS, TID (IN LEFT EYE)
     Route: 047

REACTIONS (4)
  - Drug delivery system malfunction [Unknown]
  - Extra dose administered [Unknown]
  - Product packaging issue [Unknown]
  - No adverse event [Unknown]
